FAERS Safety Report 9202123 (Version 1)
Quarter: 2013Q2

REPORT INFORMATION
  Report Type: Report from Study
  Country: US (occurrence: US)
  Receive Date: 20130401
  Receipt Date: 20130401
  Transmission Date: 20140414
  Serious: Yes (Hospitalization)
  Sender: FDA-Public Use
  Company Number: US-PURDUE-USA-2013-0100330

PATIENT
  Sex: Female

DRUGS (4)
  1. MS CONTIN TABLETS [Suspect]
     Indication: PRODUCT USED FOR UNKNOWN INDICATION
     Dosage: 60 MG, Q12H
     Route: 048
  2. AMITRIPTYLINE [Concomitant]
  3. NEURONTIN [Concomitant]
  4. CYMBALTA [Concomitant]

REACTIONS (3)
  - Hospitalisation [Unknown]
  - Headache [Unknown]
  - Hypersomnia [Unknown]
